FAERS Safety Report 7285938-2 (Version None)
Quarter: 2011Q1

REPORT INFORMATION
  Report Type: 
  Country: None (occurrence: None)
  Receive Date: 20110210
  Receipt Date: 20110207
  Transmission Date: 20110831
  Serious: Yes (Disabling)
  Sender: FDA-Public Use
  Company Number: US-MERCK-1102USA00768

PATIENT
  Age: 64 Year
  Sex: Male

DRUGS (5)
  1. ZOMETA [Suspect]
     Indication: MULTIPLE MYELOMA
     Route: 042
     Dates: start: 20080501, end: 20090801
  2. CYTOXAN [Concomitant]
     Indication: MULTIPLE MYELOMA
     Route: 048
     Dates: start: 20100501
  3. REVLIMID [Concomitant]
     Indication: MULTIPLE MYELOMA
     Route: 048
     Dates: start: 20090801, end: 20100301
  4. DECADRON [Suspect]
     Indication: MULTIPLE MYELOMA
     Dosage: 25MG DAILY FOR 21 DAYS OF EACH MONTH
     Route: 048
     Dates: start: 20040101
  5. DECADRON [Suspect]
     Route: 048
     Dates: start: 20080101

REACTIONS (1)
  - OSTEONECROSIS OF JAW [None]
